FAERS Safety Report 4868900-6 (Version None)
Quarter: 2005Q4

REPORT INFORMATION
  Report Type: 
  Country: None (occurrence: None)
  Receive Date: 20051223
  Receipt Date: 20051215
  Transmission Date: 20060501
  Serious: Yes (Hospitalization)
  Sender: FDA-Public Use
  Company Number: 2005169956

PATIENT
  Age: 83 Year
  Sex: Female

DRUGS (4)
  1. ZYVOX [Suspect]
     Indication: PYELONEPHRITIS
     Dosage: 1200 MG (600 MG, BID), ORAL
     Route: 048
     Dates: start: 20050910, end: 20050916
  2. LEVOTHYROXINE SODIQUE (LEVOTHYROXINE SODIUM) [Concomitant]
  3. AMLODIPINE (AMLODIPINE0 [Concomitant]
  4. AZATHIOPRINE (ACATHIOPRINE) [Concomitant]

REACTIONS (4)
  - DYSAESTHESIA [None]
  - ESSENTIAL HYPERTENSION [None]
  - HYPOAESTHESIA [None]
  - PARAESTHESIA [None]
